FAERS Safety Report 12306808 (Version 1)
Quarter: 2016Q2

REPORT INFORMATION
  Report Type: Spontaneous
  Country: US (occurrence: US)
  Receive Date: 20160426
  Receipt Date: 20160426
  Transmission Date: 20160815
  Serious: Yes (Other)
  Sender: FDA-Public Use
  Company Number: US-UCBSA-2016013575

PATIENT
  Age: 36 Year
  Sex: Female
  Weight: 55 kg

DRUGS (8)
  1. BENADRYL [Concomitant]
     Active Substance: DIPHENHYDRAMINE HYDROCHLORIDE
     Indication: PRODUCT USED FOR UNKNOWN INDICATION
     Dosage: UNK
     Dates: start: 20160409
  2. PREDNISONE. [Concomitant]
     Active Substance: PREDNISONE
     Indication: PRODUCT USED FOR UNKNOWN INDICATION
     Dosage: (PILLS) UNK
     Dates: start: 20160409
  3. TRILEPTAL [Concomitant]
     Active Substance: OXCARBAZEPINE
     Indication: SEIZURE
     Dosage: 300 MG, 2X/DAY (BID)
     Dates: start: 20160408
  4. KEPPRA [Suspect]
     Active Substance: LEVETIRACETAM
     Indication: SEIZURE
     Dosage: UNK
     Route: 048
     Dates: start: 20160224, end: 201604
  5. ATIVAN [Concomitant]
     Active Substance: LORAZEPAM
     Indication: PRODUCT USED FOR UNKNOWN INDICATION
     Dosage: 1 MG, ONCE DAILY (QD) (QHS)
     Dates: start: 20160409
  6. VIMPAT [Suspect]
     Active Substance: LACOSAMIDE
     Indication: TEMPORAL LOBE EPILEPSY
     Dosage: 50 MG, ONCE DAILY (QD)
     Route: 048
     Dates: start: 20160406, end: 20160408
  7. PEPCID [Concomitant]
     Active Substance: FAMOTIDINE
     Indication: PRODUCT USED FOR UNKNOWN INDICATION
     Dosage: UNK
     Dates: start: 20160410
  8. PREDNISONE. [Concomitant]
     Active Substance: PREDNISONE
     Dosage: UNK
     Route: 042
     Dates: start: 20160410

REACTIONS (12)
  - Seizure [Recovered/Resolved]
  - Rash [Recovering/Resolving]
  - Hypoaesthesia oral [Not Recovered/Not Resolved]
  - Urticaria [Not Recovered/Not Resolved]
  - Drug hypersensitivity [Unknown]
  - Amnesia [Recovering/Resolving]
  - Swelling face [Recovered/Resolved]
  - Dyspnoea [Recovered/Resolved]
  - Pruritus [Not Recovered/Not Resolved]
  - Skin injury [Not Recovered/Not Resolved]
  - Blister [Unknown]
  - Off label use [Unknown]

NARRATIVE: CASE EVENT DATE: 2016
